FAERS Safety Report 11427886 (Version 1)
Quarter: 2015Q3

REPORT INFORMATION
  Report Type: Spontaneous
  Country: VE (occurrence: None)
  Receive Date: 20150826
  Receipt Date: 20150826
  Transmission Date: 20151125
  Serious: Yes (Other)
  Sender: FDA-Public Use
  Company Number: VE-2015VAL000532

PATIENT
  Age: 72 Year
  Sex: Male

DRUGS (3)
  1. PARLODEL [Suspect]
     Active Substance: BROMOCRIPTINE MESYLATE
     Indication: PARKINSON^S DISEASE
     Route: 048
     Dates: start: 1997, end: 20150812
  2. MADOPAR (BENSERAZIDE HYDROCHLORIDE, LEVODOPA) [Concomitant]
  3. SYMMETREL [Concomitant]
     Active Substance: AMANTADINE HYDROCHLORIDE
     Indication: PARKINSON^S DISEASE
     Route: 048

REACTIONS (5)
  - Tremor [None]
  - Intervertebral disc protrusion [None]
  - Feeling abnormal [None]
  - Dysstasia [None]
  - Fall [None]

NARRATIVE: CASE EVENT DATE: 20130911
